FAERS Safety Report 21247314 (Version 4)
Quarter: 2022Q4

REPORT INFORMATION
  Report Type: Spontaneous
  Country: US (occurrence: US)
  Receive Date: 20220824
  Receipt Date: 20221227
  Transmission Date: 20230113
  Serious: No
  Sender: FDA-Public Use
  Company Number: US-PFIZER INC-202201083120

PATIENT
  Age: 61 Year
  Sex: Female
  Weight: 81.633 kg

DRUGS (4)
  1. XELJANZ [Suspect]
     Active Substance: TOFACITINIB CITRATE
     Indication: Psoriatic arthropathy
     Dosage: 5 MG, 2X/DAY
     Route: 048
  2. OXYCODONE [Concomitant]
     Active Substance: OXYCODONE
     Dosage: UNK
  3. GABAPENTIN [Concomitant]
     Active Substance: GABAPENTIN
     Indication: Nerve injury
     Dosage: UNK
  4. GABAPENTIN [Concomitant]
     Active Substance: GABAPENTIN
     Indication: Fibromyalgia

REACTIONS (10)
  - Dizziness [Not Recovered/Not Resolved]
  - Headache [Not Recovered/Not Resolved]
  - Nausea [Not Recovered/Not Resolved]
  - Nasal congestion [Unknown]
  - Respiratory symptom [Unknown]
  - Sinusitis [Not Recovered/Not Resolved]
  - Contusion [Unknown]
  - Mobility decreased [Unknown]
  - Fall [Unknown]
  - Confusional state [Unknown]

NARRATIVE: CASE EVENT DATE: 20220821
